FAERS Safety Report 6544009-0 (Version None)
Quarter: 2010Q1

REPORT INFORMATION
  Report Type: 
  Country: None (occurrence: None)
  Receive Date: 20100120
  Receipt Date: 20100112
  Transmission Date: 20100710
  Serious: Yes (Hospitalization, Other)
  Sender: FDA-Public Use
  Company Number: US-WYE-H08876709

PATIENT
  Sex: Male
  Weight: 10 kg

DRUGS (3)
  1. BENEFIX [Suspect]
     Indication: FACTOR IX DEFICIENCY
     Dosage: SOME PART OF A DOSE (USUAL DOSE 900U) IN THE EMERGENCY ROOM; VIAL STRENGTH 250 IU
     Route: 042
     Dates: start: 20090406, end: 20090406
  2. BENEFIX [Suspect]
     Dosage: 500 - 700 U (50 - 70 IU/KG) ONCE ON DEMAND
     Route: 042
     Dates: start: 20090109, end: 20090109
  3. BENEFIX [Suspect]
     Dosage: 500 - 700 U (50 - 70 IU/KG) ONCE ON DEMAND
     Route: 042
     Dates: start: 20090216, end: 20090216

REACTIONS (2)
  - ANAPHYLACTIC SHOCK [None]
  - FACTOR IX INHIBITION [None]
